FAERS Safety Report 23404929 (Version 2)
Quarter: 2024Q1

REPORT INFORMATION
  Report Type: Spontaneous
  Country: US (occurrence: US)
  Receive Date: 20240116
  Receipt Date: 20240313
  Transmission Date: 20240410
  Serious: No
  Sender: FDA-Public Use
  Company Number: US-PFIZER INC-202300434279

PATIENT
  Age: 9 Year
  Sex: Female

DRUGS (2)
  1. GENOTROPIN [Suspect]
     Active Substance: SOMATROPIN
     Indication: Turner^s syndrome
     Dosage: 1.2MG EVERY NIGHT (SUBCUTANEOUS ON THIGHS)
     Route: 058
  2. GENOTROPIN [Suspect]
     Active Substance: SOMATROPIN
     Dosage: UNK

REACTIONS (2)
  - Poor quality device used [Unknown]
  - Device defective [Unknown]

NARRATIVE: CASE EVENT DATE: 20231221
